FAERS Safety Report 25042408 (Version 1)
Quarter: 2025Q1

REPORT INFORMATION
  Report Type: Spontaneous
  Country: CN (occurrence: CN)
  Receive Date: 20250305
  Receipt Date: 20250305
  Transmission Date: 20250408
  Serious: Yes (Other)
  Sender: MERCK SHARP & DOHME LLC
  Company Number: CN-009507513-2258290

PATIENT
  Age: 51 Year
  Sex: Female

DRUGS (27)
  1. PEMBROLIZUMAB [Suspect]
     Active Substance: PEMBROLIZUMAB
     Indication: Triple negative breast cancer
     Dosage: DAY 1; NEOADJUVANT TREATMENT
     Dates: start: 20240606, end: 20240606
  2. PEMBROLIZUMAB [Suspect]
     Active Substance: PEMBROLIZUMAB
     Indication: Triple negative breast cancer
     Dosage: DAY 1; NEOADJUVANT TREATMENT
     Dates: start: 20240627, end: 20240627
  3. PEMBROLIZUMAB [Suspect]
     Active Substance: PEMBROLIZUMAB
     Indication: Triple negative breast cancer
     Dosage: DAY 1; NEOADJUVANT TREATMENT
     Dates: start: 20240718, end: 20240718
  4. PEMBROLIZUMAB [Suspect]
     Active Substance: PEMBROLIZUMAB
     Indication: Triple negative breast cancer
     Dosage: DAY 1; NEOADJUVANT TREATMENT
     Dates: start: 20240808, end: 20240808
  5. PEMBROLIZUMAB [Suspect]
     Active Substance: PEMBROLIZUMAB
     Indication: Triple negative breast cancer
     Dosage: DAY 1; NEOADJUVANT TREATMENT
     Dates: start: 20240829, end: 20240829
  6. PEMBROLIZUMAB [Suspect]
     Active Substance: PEMBROLIZUMAB
     Indication: Triple negative breast cancer
     Dosage: DAY 1; NEOADJUVANT TREATMENT
     Dates: start: 20240919, end: 20240919
  7. PEMBROLIZUMAB [Suspect]
     Active Substance: PEMBROLIZUMAB
     Indication: Triple negative breast cancer
     Dosage: DAY 1; NEOADJUVANT TREATMENT
     Dates: start: 20241010, end: 20241010
  8. PEMBROLIZUMAB [Suspect]
     Active Substance: PEMBROLIZUMAB
     Indication: Triple negative breast cancer
     Dosage: DAY 1; NEOADJUVANT TREATMENT
     Dates: start: 20241031, end: 20241031
  9. PEMBROLIZUMAB [Suspect]
     Active Substance: PEMBROLIZUMAB
     Indication: Triple negative breast cancer
     Dosage: DAY 1; POST-OPERATION TREATMENT
     Dates: start: 20241223, end: 20241223
  10. PEMBROLIZUMAB [Suspect]
     Active Substance: PEMBROLIZUMAB
     Indication: Triple negative breast cancer
     Dosage: DAY 1; POST-OPERATION TREATMENT
     Dates: start: 20250115, end: 20250115
  11. PEMBROLIZUMAB [Suspect]
     Active Substance: PEMBROLIZUMAB
     Indication: Triple negative breast cancer
     Dosage: DAY 1; POST-OPERATION TREATMENT
     Dates: start: 20250206, end: 20250206
  12. PACLITAXEL [Suspect]
     Active Substance: PACLITAXEL
     Indication: Triple negative breast cancer
     Dates: start: 20240606, end: 20240606
  13. PACLITAXEL [Suspect]
     Active Substance: PACLITAXEL
     Indication: Triple negative breast cancer
     Dates: start: 20240627, end: 20240627
  14. PACLITAXEL [Suspect]
     Active Substance: PACLITAXEL
     Indication: Triple negative breast cancer
     Dates: start: 20240718, end: 20240718
  15. PACLITAXEL [Suspect]
     Active Substance: PACLITAXEL
     Indication: Triple negative breast cancer
     Dates: start: 20240808, end: 20240808
  16. EPIRUBICIN [Suspect]
     Active Substance: EPIRUBICIN
     Indication: Triple negative breast cancer
     Dosage: DAY 1
     Dates: start: 20240829, end: 20240829
  17. EPIRUBICIN [Suspect]
     Active Substance: EPIRUBICIN
     Indication: Triple negative breast cancer
     Dosage: DAY 1
     Dates: start: 20240919, end: 20240919
  18. EPIRUBICIN [Suspect]
     Active Substance: EPIRUBICIN
     Indication: Triple negative breast cancer
     Dosage: DAY 1
     Dates: start: 20241010, end: 20241010
  19. EPIRUBICIN [Suspect]
     Active Substance: EPIRUBICIN
     Indication: Triple negative breast cancer
     Dosage: DAY 1
     Dates: start: 20241031, end: 20241031
  20. CYCLOPHOSPHAMIDE [Suspect]
     Active Substance: CYCLOPHOSPHAMIDE
     Indication: Triple negative breast cancer
     Dosage: DAY 1
     Dates: start: 20240829, end: 20240829
  21. CYCLOPHOSPHAMIDE [Suspect]
     Active Substance: CYCLOPHOSPHAMIDE
     Indication: Triple negative breast cancer
     Dosage: DAY 1
     Dates: start: 20240919, end: 20240919
  22. CYCLOPHOSPHAMIDE [Suspect]
     Active Substance: CYCLOPHOSPHAMIDE
     Indication: Triple negative breast cancer
     Dosage: DAY 1
     Dates: start: 20241010, end: 20241010
  23. CYCLOPHOSPHAMIDE [Suspect]
     Active Substance: CYCLOPHOSPHAMIDE
     Indication: Triple negative breast cancer
     Dosage: DAY 1
     Dates: start: 20241031, end: 20241031
  24. CARBOPLATIN [Suspect]
     Active Substance: CARBOPLATIN
     Indication: Triple negative breast cancer
     Dosage: DAY 1
     Dates: start: 20240606, end: 20240606
  25. CARBOPLATIN [Suspect]
     Active Substance: CARBOPLATIN
     Indication: Triple negative breast cancer
     Dosage: DAY 1
     Dates: start: 20240627, end: 20240627
  26. CARBOPLATIN [Suspect]
     Active Substance: CARBOPLATIN
     Indication: Triple negative breast cancer
     Dosage: DAY 1
     Dates: start: 20240718, end: 20240718
  27. CARBOPLATIN [Suspect]
     Active Substance: CARBOPLATIN
     Indication: Triple negative breast cancer
     Dosage: DAY 1
     Dates: start: 20240808, end: 20240808

REACTIONS (8)
  - Myelosuppression [Unknown]
  - Gastrointestinal disorder [Unknown]
  - Fatigue [Unknown]
  - Alopecia [Unknown]
  - Anaemia [Unknown]
  - Therapy partial responder [Unknown]
  - Inappropriate schedule of product administration [Unknown]
  - Inappropriate schedule of product administration [Unknown]

NARRATIVE: CASE EVENT DATE: 20240101
